FAERS Safety Report 20316320 (Version 2)
Quarter: 2022Q1

REPORT INFORMATION
  Report Type: Report from Study
  Country: MX (occurrence: None)
  Receive Date: 20220110
  Receipt Date: 20220131
  Transmission Date: 20220424
  Serious: Yes (Hospitalization)
  Sender: FDA-Public Use
  Company Number: MX-Merck Healthcare KGaA-9291515

PATIENT
  Sex: Female

DRUGS (7)
  1. REBIF [Suspect]
     Active Substance: INTERFERON BETA-1A
     Indication: Multiple sclerosis
     Route: 058
     Dates: start: 20180926
  2. PFIZER-BIONTECH COVID-19 VACCINE [Suspect]
     Active Substance: TOZINAMERAN
     Indication: COVID-19 immunisation
  3. NAPROXEN [Concomitant]
     Active Substance: NAPROXEN
     Indication: Pyrexia
  4. NAPROXEN [Concomitant]
     Active Substance: NAPROXEN
     Indication: Nasopharyngitis
  5. NAPROXEN [Concomitant]
     Active Substance: NAPROXEN
     Indication: Premedication
  6. HYDROCHLOROTHIAZIDE [Concomitant]
     Active Substance: HYDROCHLOROTHIAZIDE
     Indication: Hypertension
  7. CANDESARTAN [Concomitant]
     Active Substance: CANDESARTAN
     Indication: Hypertension

REACTIONS (3)
  - Multiple sclerosis relapse [Recovering/Resolving]
  - Fall [Not Recovered/Not Resolved]
  - Therapeutic response decreased [Not Recovered/Not Resolved]
